FAERS Safety Report 14108282 (Version 1)
Quarter: 2017Q4

REPORT INFORMATION
  Report Type: Spontaneous
  Country: JP (occurrence: JP)
  Receive Date: 20171019
  Receipt Date: 20171019
  Transmission Date: 20180321
  Serious: Yes (Other)
  Sender: FDA-Public Use
  Company Number: JP-PFIZER INC-2017446662

PATIENT
  Age: 80 Year
  Sex: Female

DRUGS (1)
  1. INLYTA [Suspect]
     Active Substance: AXITINIB
     Dosage: 3 MG, 2X/DAY (5-DAY-ON AND 2-DAY-OFF SCHEDULE)
     Route: 048

REACTIONS (2)
  - Impaired healing [Unknown]
  - Arrhythmia [Unknown]
